FAERS Safety Report 7912807-4 (Version None)
Quarter: 2011Q4

REPORT INFORMATION
  Report Type: 
  Country: None (occurrence: None)
  Receive Date: 20111114
  Receipt Date: 20111107
  Transmission Date: 20120403
  Serious: Yes (Hospitalization, Other)
  Sender: FDA-Public Use
  Company Number: US-GLAXOSMITHKLINE-A0935361A

PATIENT
  Age: 73 Year
  Sex: Male
  Weight: 85 kg

DRUGS (14)
  1. EPLERENONE [Suspect]
     Indication: CARDIAC FAILURE CONGESTIVE
     Route: 048
     Dates: start: 20100914
  2. WARFARIN SODIUM [Concomitant]
     Dates: start: 19980314
  3. METHYLPREDNISOLONE ACETATE [Concomitant]
  4. STARLIX [Concomitant]
     Dates: start: 19980201, end: 20110427
  5. LIPITOR [Concomitant]
     Dates: start: 19980201
  6. LISINOPRIL [Concomitant]
     Dates: start: 19980201, end: 20110427
  7. ONGLYZA [Concomitant]
     Dates: start: 20101201, end: 20110427
  8. DIGOXIN [Suspect]
     Indication: CARDIAC FAILURE CONGESTIVE
     Dosage: 125UG PER DAY
     Route: 048
     Dates: start: 20090130, end: 20110427
  9. PROCRIT [Concomitant]
     Dates: start: 20090804
  10. LASIX [Concomitant]
     Dates: start: 20090601, end: 20110427
  11. METFORMIN [Concomitant]
     Dates: start: 19980201, end: 20110427
  12. COREG [Concomitant]
     Dates: start: 19980201
  13. NITROGLYCERIN [Concomitant]
     Dates: start: 19980201
  14. INDOMETHACIN [Concomitant]
     Dates: start: 20100329, end: 20110427

REACTIONS (4)
  - BRADYCARDIA [None]
  - TOXICITY TO VARIOUS AGENTS [None]
  - MENTAL STATUS CHANGES [None]
  - RENAL FAILURE ACUTE [None]
